FAERS Safety Report 8083753-3 (Version None)
Quarter: 2012Q1

REPORT INFORMATION
  Report Type: 
  Country: None (occurrence: None)
  Receive Date: 20120127
  Receipt Date: 20110120
  Transmission Date: 20120608
  Serious: No
  Sender: FDA-Public Use
  Company Number: US-ABBOTT-11P-163-0700195-00

PATIENT

DRUGS (5)
  1. LEVOTHYROXINE SODIUM [Concomitant]
     Indication: HYPOTHYROIDISM
  2. VENTOLIN [Concomitant]
     Indication: ASTHMA
  3. UNKNOWN BLOOD PRESSURE MED [Concomitant]
     Indication: HYPERTENSION
  4. HUMIRA [Suspect]
     Indication: PSORIATIC ARTHROPATHY
     Dates: start: 20100901
  5. ADVAIR DISKUS 100/50 [Concomitant]
     Indication: ASTHMA

REACTIONS (7)
  - OROPHARYNGEAL PAIN [None]
  - WHEEZING [None]
  - INFLUENZA LIKE ILLNESS [None]
  - ARTHRALGIA [None]
  - BONE PAIN [None]
  - NASOPHARYNGITIS [None]
  - BRONCHITIS [None]
